FAERS Safety Report 8519605-1 (Version None)
Quarter: 2012Q3

REPORT INFORMATION
  Report Type: 
  Country: None (occurrence: None)
  Receive Date: 20120718
  Receipt Date: 20120713
  Transmission Date: 20120928
  Serious: Yes (Disabling, Other)
  Sender: FDA-Public Use
  Company Number: DK-ABBOTT-12P-044-0919456-00

PATIENT
  Sex: Female
  Weight: 60 kg

DRUGS (3)
  1. HUMIRA [Suspect]
     Indication: RHEUMATOID ARTHRITIS
     Dates: start: 20080922, end: 20090604
  2. ROACTERMA [Concomitant]
     Indication: RHEUMATOID ARTHRITIS
     Dates: start: 20100414
  3. ENBREL [Concomitant]
     Indication: PRODUCT USED FOR UNKNOWN INDICATION
     Dates: start: 20090714, end: 20100122

REACTIONS (1)
  - POLYNEUROPATHY [None]
